FAERS Safety Report 24357887 (Version 1)
Quarter: 2024Q3

REPORT INFORMATION
  Report Type: Spontaneous
  Country: US (occurrence: US)
  Receive Date: 20240924
  Receipt Date: 20240924
  Transmission Date: 20241017
  Serious: No
  Sender: CELLTRION
  Company Number: US-CELLTRION INC.-2023US017244

PATIENT

DRUGS (1)
  1. INFLECTRA [Suspect]
     Active Substance: INFLIXIMAB-DYYB
     Indication: Rheumatoid arthritis
     Dosage: 800MG Q 6 WEEKS (800 100 MG/20 ML); 8 VIALS 100 MG/20ML
     Route: 065

REACTIONS (1)
  - Intentional product use issue [Unknown]
